FAERS Safety Report 7802966-6 (Version None)
Quarter: 2011Q4

REPORT INFORMATION
  Report Type: 
  Country: None (occurrence: None)
  Receive Date: 20111007
  Receipt Date: 20110923
  Transmission Date: 20120403
  Serious: Yes (Death, Life-Threatening, Hospitalization, Other)
  Sender: FDA-Public Use
  Company Number: DE-CELGENEUS-062-21880-10102942

PATIENT
  Age: 57 Year
  Sex: Male
  Weight: 77 kg

DRUGS (5)
  1. TACROLIMUS [Concomitant]
     Indication: PROPHYLAXIS AGAINST GRAFT VERSUS HOST DISEASE
     Dosage: 1 MILLIGRAM
     Route: 048
     Dates: start: 20101025, end: 20110505
  2. REVLIMID [Suspect]
     Indication: MULTIPLE MYELOMA
     Dosage: 25 MILLIGRAM
     Route: 048
     Dates: start: 20091029
  3. REVLIMID [Suspect]
     Route: 048
     Dates: start: 20110223, end: 20110301
  4. DEXAMETHASONE [Suspect]
     Indication: MULTIPLE MYELOMA
     Dosage: 40 MILLIGRAM
     Route: 048
     Dates: start: 20091029
  5. ADRIAMYCIN PFS [Suspect]
     Indication: MULTIPLE MYELOMA
     Dosage: 17 MILLIGRAM
     Route: 041
     Dates: start: 20091029

REACTIONS (6)
  - MULTI-ORGAN FAILURE [None]
  - ACUTE GRAFT VERSUS HOST DISEASE IN INTESTINE [None]
  - HEPATIC FAILURE [None]
  - LUNG INFECTION [None]
  - SEPSIS [None]
  - ACUTE GRAFT VERSUS HOST DISEASE IN SKIN [None]
